FAERS Safety Report 7072135-9 (Version None)
Quarter: 2010Q4

REPORT INFORMATION
  Report Type: 
  Country: None (occurrence: None)
  Receive Date: 20101029
  Receipt Date: 20091207
  Transmission Date: 20110411
  Serious: No
  Sender: FDA-Public Use
  Company Number: A0833886A

PATIENT
  Age: 50 Year
  Sex: Female

DRUGS (3)
  1. ADVAIR DISKUS 100/50 [Suspect]
     Indication: CHRONIC OBSTRUCTIVE PULMONARY DISEASE
     Dosage: 1VA VARIABLE DOSE
     Route: 055
     Dates: start: 20090101
  2. SINGULAIR [Concomitant]
  3. MUCINEX [Concomitant]

REACTIONS (4)
  - DRUG DISPENSING ERROR [None]
  - DYSPNOEA [None]
  - FATIGUE [None]
  - MALAISE [None]
